FAERS Safety Report 6323885-0 (Version None)
Quarter: 2009Q3

REPORT INFORMATION
  Report Type: 
  Country: None (occurrence: None)
  Receive Date: 20090824
  Receipt Date: 20090726
  Transmission Date: 20100115
  Serious: No
  Sender: FDA-Public Use
  Company Number: US-ABBOTT-09P-163-0576991-00

PATIENT
  Age: 64 Year
  Sex: Male

DRUGS (7)
  1. NIASPAN [Suspect]
     Indication: HIGH DENSITY LIPOPROTEIN DECREASED
     Dosage: 500 MG PO QHS X 6 DAYS
     Dates: start: 20090501
  2. NIASPAN [Suspect]
     Indication: LOW DENSITY LIPOPROTEIN INCREASED
     Dosage: 1000 MG PO
  3. ASPIRIN [Concomitant]
     Indication: DRUG USE FOR UNKNOWN INDICATION
     Dosage: Q HS
     Route: 048
  4. BENICAR [Concomitant]
     Indication: DRUG USE FOR UNKNOWN INDICATION
  5. VYTORIN [Concomitant]
     Indication: DRUG USE FOR UNKNOWN INDICATION
  6. UNKNOWN BETA BLOCKER [Concomitant]
     Indication: DRUG USE FOR UNKNOWN INDICATION
  7. UNKNOWN GERD MEDICATION [Concomitant]
     Indication: DRUG USE FOR UNKNOWN INDICATION

REACTIONS (2)
  - FLUSHING [None]
  - PARAESTHESIA [None]
